FAERS Safety Report 8448942-4 (Version None)
Quarter: 2012Q2

REPORT INFORMATION
  Report Type: 
  Country: None (occurrence: None)
  Receive Date: 20120619
  Receipt Date: 20120613
  Transmission Date: 20120825
  Serious: Yes (Hospitalization)
  Sender: FDA-Public Use
  Company Number: IN-GLAXOSMITHKLINE-B0808846A

PATIENT
  Age: 20 Month
  Sex: Male

DRUGS (6)
  1. ALBUTEROL [Suspect]
     Route: 055
  2. AMOXICILLIN [Concomitant]
     Route: 048
  3. ALBUTEROL [Concomitant]
     Route: 048
  4. CEPHALOSPORIN [Concomitant]
     Route: 042
  5. SALBUTAMOL + IPRATROPIUM BROMIDE [Concomitant]
  6. HYDROCORTISONE [Concomitant]
     Route: 042

REACTIONS (9)
  - METABOLIC ACIDOSIS [None]
  - CONDITION AGGRAVATED [None]
  - WHEEZING [None]
  - TACHYPNOEA [None]
  - TOXICITY TO VARIOUS AGENTS [None]
  - PYREXIA [None]
  - DYSPNOEA [None]
  - SOMNOLENCE [None]
  - RHONCHI [None]
